FAERS Safety Report 5605263-2 (Version None)
Quarter: 2008Q1

REPORT INFORMATION
  Report Type: 
  Country: None (occurrence: None)
  Receive Date: 20080129
  Receipt Date: 20080116
  Transmission Date: 20080703
  Serious: Yes (Other)
  Sender: FDA-Public Use
  Company Number: FR-PFIZER INC-2008007429

PATIENT
  Sex: Male

DRUGS (3)
  1. CHANTIX [Suspect]
     Indication: SMOKING CESSATION THERAPY
  2. AMLOR [Concomitant]
     Indication: PRINZMETAL ANGINA
  3. BENZODIAZEPINE DERIVATIVES [Concomitant]
     Indication: SLEEP DISORDER

REACTIONS (7)
  - DIARRHOEA [None]
  - DISINHIBITION [None]
  - FATIGUE [None]
  - MYALGIA [None]
  - NAUSEA [None]
  - PRURITUS [None]
  - SOMNOLENCE [None]
